FAERS Safety Report 11828575 (Version 1)
Quarter: 2015Q4

REPORT INFORMATION
  Report Type: Spontaneous
  Country: GB (occurrence: GB)
  Receive Date: 20151211
  Receipt Date: 20151211
  Transmission Date: 20160305
  Serious: Yes (Other)
  Sender: FDA-Public Use
  Company Number: GB-PFIZER INC-2015429256

PATIENT
  Age: 60 Year
  Sex: Male
  Weight: 108 kg

DRUGS (13)
  1. LIDOCAINE. [Concomitant]
     Active Substance: LIDOCAINE
     Dosage: USE AS DIRECTED
     Dates: start: 20151001, end: 20151002
  2. TAMSULOSIN HYDROCHLORIDE. [Concomitant]
     Active Substance: TAMSULOSIN HYDROCHLORIDE
     Dosage: 1 DF, 1X/DAY
     Dates: start: 20150206
  3. ASPIRIN. [Concomitant]
     Active Substance: ASPIRIN
     Dosage: 1 DF, 1X/DAY
     Dates: start: 20150317
  4. EZETIMIBE. [Concomitant]
     Active Substance: EZETIMIBE
     Dosage: 1 DF, 1X/DAY
     Dates: start: 20140528
  5. GLYCERYL TRINITRATE [Concomitant]
     Active Substance: NITROGLYCERIN
     Dosage: 1 OR 2 DF, AS NEEDED
     Dates: start: 20140908
  6. LACTULOSE. [Concomitant]
     Active Substance: LACTULOSE
     Indication: CONSTIPATION
     Dosage: 15 ML, 2X/DAY
     Dates: start: 20151001, end: 20151029
  7. METOPROLOL TARTRATE. [Concomitant]
     Active Substance: METOPROLOL TARTRATE
     Dosage: 0.5 DF, 3X/DAY
     Dates: start: 20150206
  8. BECONASE AQ [Concomitant]
     Active Substance: BECLOMETHASONE DIPROPIONATE MONOHYDRATE
     Dosage: 2 DF, 2X/DAY EACH NOSTRIL
     Route: 045
     Dates: start: 20150526
  9. CODEINE PHOSPHATE [Concomitant]
     Active Substance: CODEINE PHOSPHATE
     Dosage: 1 OR 2 DF, 4X/DAY
     Dates: start: 20151127
  10. LANSOPRAZOLE. [Concomitant]
     Active Substance: LANSOPRAZOLE
     Indication: DYSPEPSIA
     Dosage: 1 DF, 1X/DAY
     Dates: start: 20150206
  11. ATORVASTATIN [Suspect]
     Active Substance: ATORVASTATIN
     Indication: PROPHYLAXIS
     Dosage: UNK
     Dates: start: 20150206
  12. PARACETAMOL [Concomitant]
     Active Substance: ACETAMINOPHEN
     Dosage: 1 OR 2 DF UP TO 4X/DAY
     Dates: start: 20150206
  13. METHYLPREDNISOLONE ACETATE. [Concomitant]
     Active Substance: METHYLPREDNISOLONE ACETATE
     Dosage: 80 MG, UNK
     Dates: start: 20151001, end: 20151002

REACTIONS (1)
  - Alveolitis [Recovering/Resolving]

NARRATIVE: CASE EVENT DATE: 20151127
